FAERS Safety Report 7806476-1 (Version None)
Quarter: 2011Q4

REPORT INFORMATION
  Report Type: 
  Country: None (occurrence: None)
  Receive Date: 20111011
  Receipt Date: 20111003
  Transmission Date: 20120403
  Serious: Yes (Other)
  Sender: FDA-Public Use
  Company Number: PT-UCBSA-042292

PATIENT
  Age: 16 Year
  Sex: Female

DRUGS (7)
  1. KEPPRA [Suspect]
     Route: 048
     Dates: start: 20100901, end: 20110401
  2. CARBAMAZEPINE [Concomitant]
     Indication: BENIGN ROLANDIC EPILEPSY
     Route: 048
  3. CARBAMAZEPINE [Concomitant]
     Indication: PARTIAL SEIZURES
     Route: 048
  4. KEPPRA [Suspect]
     Indication: PARTIAL SEIZURES
     Route: 048
     Dates: start: 20110401
  5. KEPPRA [Suspect]
     Indication: BENIGN ROLANDIC EPILEPSY
     Route: 048
     Dates: start: 20110401
  6. TUBERCULOSTATICS [Concomitant]
     Indication: TUBERCULOSIS
  7. KEPPRA [Suspect]
     Route: 048
     Dates: start: 20100901, end: 20110401

REACTIONS (4)
  - DEPRESSION [None]
  - ABNORMAL BEHAVIOUR [None]
  - EATING DISORDER [None]
  - SUICIDAL IDEATION [None]
